FAERS Safety Report 20320339 (Version 1)
Quarter: 2022Q1

REPORT INFORMATION
  Report Type: Spontaneous
  Country: CN (occurrence: CN)
  Receive Date: 20220111
  Receipt Date: 20220111
  Transmission Date: 20220423
  Serious: Yes (Other)
  Sender: FDA-Public Use
  Company Number: CN-ABBVIE-22K-035-4228487-00

PATIENT
  Age: 62 Year
  Sex: Female

DRUGS (3)
  1. VALPROATE SODIUM [Suspect]
     Active Substance: VALPROATE SODIUM
     Indication: Epileptic psychosis
     Route: 048
     Dates: start: 20180601, end: 20181026
  2. PHENYTOIN SODIUM [Suspect]
     Active Substance: PHENYTOIN SODIUM
     Indication: Epileptic psychosis
     Route: 048
     Dates: start: 20180601, end: 20181026
  3. CLOZAPINE [Suspect]
     Active Substance: CLOZAPINE
     Indication: Epileptic psychosis
     Route: 048
     Dates: start: 20180601, end: 20181026

REACTIONS (1)
  - White blood cell count decreased [Recovering/Resolving]

NARRATIVE: CASE EVENT DATE: 20181008
